FAERS Safety Report 23972361 (Version 2)
Quarter: 2024Q4

REPORT INFORMATION
  Report Type: Report from Study
  Country: US (occurrence: US)
  Receive Date: 20240613
  Receipt Date: 20241029
  Transmission Date: 20250114
  Serious: Yes (Other)
  Sender: UCB
  Company Number: US-UCBSA-2024002486

PATIENT
  Sex: Female
  Weight: 41 kg

DRUGS (4)
  1. FINTEPLA [Suspect]
     Active Substance: FENFLURAMINE
     Indication: Severe myoclonic epilepsy of infancy
     Dosage: 5.4 MILLILITER, 2X/DAY (BID)
     Dates: start: 20210213
  2. FINTEPLA [Suspect]
     Active Substance: FENFLURAMINE
     Dosage: 5.4 MILLILITER, 2X/DAY (BID)
  3. FINTEPLA [Suspect]
     Active Substance: FENFLURAMINE
     Dosage: 0.58MG/KG/DAY
  4. BACLOFEN [Concomitant]
     Active Substance: BACLOFEN
     Indication: Product used for unknown indication
     Dosage: UNK

REACTIONS (2)
  - Seizure [Not Recovered/Not Resolved]
  - Feeling drunk [Recovered/Resolved]
